FAERS Safety Report 8393123-6 (Version None)
Quarter: 2012Q1

REPORT INFORMATION
  Report Type: 
  Country: None (occurrence: None)
  Receive Date: 20120323
  Receipt Date: 20110311
  Transmission Date: 20120608
  Serious: Yes (Hospitalization)
  Sender: FDA-Public Use
  Company Number: 163-21880-11031570

PATIENT
  Age: 73 Year
  Sex: Female

DRUGS (16)
  1. REVLIMID [Suspect]
     Indication: LEUKAEMIA
     Dosage: SEE IMAGE
     Route: 048
     Dates: start: 20080301
  2. REVLIMID [Suspect]
     Indication: LEUKAEMIA
     Dosage: SEE IMAGE
     Route: 048
     Dates: start: 20101129, end: 20101223
  3. REVLIMID [Suspect]
     Indication: LEUKAEMIA
     Dosage: SEE IMAGE
     Route: 048
     Dates: start: 20071001
  4. REVLIMID [Suspect]
     Indication: LEUKAEMIA
     Dosage: SEE IMAGE
     Route: 048
     Dates: start: 20100801, end: 20101001
  5. PROCRIT [Concomitant]
  6. VICODIN [Concomitant]
  7. OMEPRAZOLE [Concomitant]
  8. FOLIC ACID [Concomitant]
  9. LISINOPRIL [Concomitant]
  10. FUROSEMIDE [Concomitant]
  11. DIPYRIDAMOLE [Concomitant]
  12. DECITABINE (DECITABINE) [Concomitant]
  13. DANAZOL [Concomitant]
  14. CALCIUM ACETATE [Concomitant]
  15. PREDNISONE TAB [Concomitant]
  16. PRBC (RED BLOOD CELLS, CONCENTRATED) [Concomitant]

REACTIONS (3)
  - SUBDURAL HAEMORRHAGE [None]
  - FEBRILE NEUTROPENIA [None]
  - PANCYTOPENIA [None]
